FAERS Safety Report 4796988-X (Version None)
Quarter: 2005Q4

REPORT INFORMATION
  Report Type: 
  Country: None (occurrence: None)
  Receive Date: 20051013
  Receipt Date: 20051003
  Transmission Date: 20060501
  Serious: Yes (Hospitalization, Other)
  Sender: FDA-Public Use
  Company Number: US-MERCK-0510USA02195

PATIENT
  Age: 61 Year
  Sex: Female
  Weight: 55 kg

DRUGS (4)
  1. VIOXX [Suspect]
     Route: 048
     Dates: start: 19990901, end: 20020501
  2. PREMARIN [Concomitant]
     Route: 065
  3. PROVERA [Concomitant]
     Route: 065
  4. XANAX [Concomitant]
     Route: 065

REACTIONS (3)
  - CEREBROVASCULAR ACCIDENT [None]
  - DEPRESSION [None]
  - HOSPITALISATION [None]
